FAERS Safety Report 10311492 (Version 2)
Quarter: 2014Q3

REPORT INFORMATION
  Report Type: Spontaneous
  Country: AU (occurrence: AU)
  Receive Date: 20140717
  Receipt Date: 20140724
  Transmission Date: 20150326
  Serious: Yes (Other)
  Sender: FDA-Public Use
  Company Number: AU-ALLERGAN-1415592US

PATIENT
  Age: 81 Year
  Sex: Female
  Weight: 57 kg

DRUGS (7)
  1. ZOCOR [Concomitant]
     Active Substance: SIMVASTATIN
  2. WARFARIN [Concomitant]
     Active Substance: WARFARIN
  3. KARVEA [Concomitant]
     Active Substance: IRBESARTAN
  4. ALPHAGAN P [Suspect]
     Active Substance: BRIMONIDINE TARTRATE
     Indication: GLAUCOMA
     Dosage: ^2 DOSE UNSPECIFIED DAILY^
     Route: 047
     Dates: start: 20000313, end: 20010228
  5. VOLTAREN [Concomitant]
     Active Substance: DICLOFENAC SODIUM
     Dosage: UNK
  6. DIGOXIN. [Concomitant]
     Active Substance: DIGOXIN
     Dosage: UNK
  7. BETALOC                            /00376902/ [Concomitant]
     Dosage: UNK

REACTIONS (2)
  - Confusional state [Recovered/Resolved]
  - Nightmare [Recovered/Resolved]

NARRATIVE: CASE EVENT DATE: 20001031
